FAERS Safety Report 10570140 (Version 1)
Quarter: 2014Q4

REPORT INFORMATION
  Report Type: Spontaneous
  Country: IT (occurrence: None)
  Receive Date: 20141105
  Receipt Date: 20141105
  Transmission Date: 20150529
  Serious: Yes (Other)
  Sender: FDA-Public Use
  Company Number: VAL_03505_2014

PATIENT
  Age: 27 Year
  Sex: Female

DRUGS (2)
  1. LACOSAMIDE (LACOSAMIDE) [Suspect]
     Active Substance: LACOSAMIDE
     Indication: GENERALISED TONIC-CLONIC SEIZURE
  2. CARBAMAZEPINE (CARBAMAZEPINE) [Suspect]
     Active Substance: CARBAMAZEPINE
     Indication: GENERALISED TONIC-CLONIC SEIZURE
     Dosage: 25 MG/KG [25 MG/KG BODY WT)

REACTIONS (2)
  - Drug interaction [None]
  - Myoclonus [None]
